FAERS Safety Report 22538985 (Version 1)
Quarter: 2023Q2

REPORT INFORMATION
  Report Type: Spontaneous
  Country: TW (occurrence: TW)
  Receive Date: 20230609
  Receipt Date: 20230609
  Transmission Date: 20230722
  Serious: Yes (Death, Hospitalization, Other)
  Sender: FDA-Public Use
  Company Number: TW-TOLMAR, INC.-23TW041278

PATIENT
  Age: 34 Year
  Sex: Female

DRUGS (11)
  1. ELIGARD [Suspect]
     Active Substance: LEUPROLIDE ACETATE
     Indication: Uterine haemorrhage
     Dosage: UNK
  2. ELIGARD [Suspect]
     Active Substance: LEUPROLIDE ACETATE
     Indication: Coagulopathy
  3. ELIGARD [Suspect]
     Active Substance: LEUPROLIDE ACETATE
     Indication: Uterine haemorrhage
     Dosage: UNK
  4. ELIGARD [Suspect]
     Active Substance: LEUPROLIDE ACETATE
     Indication: Coagulopathy
  5. WARFARIN [Suspect]
     Active Substance: WARFARIN
     Indication: Uterine haemorrhage
     Dosage: UNK
  6. WARFARIN [Suspect]
     Active Substance: WARFARIN
     Indication: Coagulopathy
  7. TRANEXAMIC ACID [Suspect]
     Active Substance: TRANEXAMIC ACID
     Indication: Uterine haemorrhage
     Dosage: UNK
  8. TRANEXAMIC ACID [Suspect]
     Active Substance: TRANEXAMIC ACID
     Indication: Coagulopathy
  9. ERGONOVINE MALEATE [Suspect]
     Active Substance: ERGONOVINE MALEATE
     Indication: Uterine haemorrhage
     Dosage: UNK
  10. ERGONOVINE MALEATE [Suspect]
     Active Substance: ERGONOVINE MALEATE
     Indication: Coagulopathy
  11. PFIZER-BIONTECH COVID-19 VACCINE [Suspect]
     Active Substance: TOZINAMERAN
     Indication: COVID-19 prophylaxis
     Dosage: UNK

REACTIONS (12)
  - Sudden death [Fatal]
  - Disease progression [Not Recovered/Not Resolved]
  - Bacteroides bacteraemia [Unknown]
  - Infection [Unknown]
  - Escherichia urinary tract infection [Unknown]
  - Abdominal pain lower [Unknown]
  - Lymphopenia [Not Recovered/Not Resolved]
  - Off label use [Unknown]
  - Diarrhoea [Unknown]
  - Pyrexia [Unknown]
  - Vomiting [Unknown]
  - Pollakiuria [Unknown]
